FAERS Safety Report 23454734 (Version 1)
Quarter: 2024Q1

REPORT INFORMATION
  Report Type: Other
  Country: FR (occurrence: FR)
  Receive Date: 20240130
  Receipt Date: 20240130
  Transmission Date: 20240409
  Serious: Yes (Hospitalization)
  Sender: FDA-Public Use
  Company Number: None

PATIENT

DRUGS (1)
  1. ACETAMINOPHEN [Suspect]
     Active Substance: ACETAMINOPHEN
     Indication: Suicide attempt
     Dosage: 12 GRAM
     Route: 048
     Dates: start: 20231119, end: 20231119

REACTIONS (3)
  - Hepatitis acute [Recovering/Resolving]
  - Intentional overdose [Recovered/Resolved]
  - Acute kidney injury [Recovered/Resolved]

NARRATIVE: CASE EVENT DATE: 20231119
